FAERS Safety Report 11587681 (Version 3)
Quarter: 2016Q1

REPORT INFORMATION
  Report Type: Spontaneous
  Country: US (occurrence: US)
  Receive Date: 20151001
  Receipt Date: 20160204
  Transmission Date: 20160525
  Serious: Yes (Hospitalization, Other)
  Sender: FDA-Public Use
  Company Number: US-ASTRAZENECA-2015SE92193

PATIENT
  Age: 60 Year
  Sex: Female
  Weight: 53.5 kg

DRUGS (19)
  1. SYMBICORT [Suspect]
     Active Substance: BUDESONIDE\FORMOTEROL FUMARATE DIHYDRATE
     Indication: ASTHMA
     Dosage: 160/4.5 MCG, 2 PUFFS, EVERY MORNING
     Route: 055
     Dates: start: 2012, end: 20160116
  2. SYMBICORT [Suspect]
     Active Substance: BUDESONIDE\FORMOTEROL FUMARATE DIHYDRATE
     Indication: PNEUMONIA ASPIRATION
     Dosage: 160/4.5 MCG, 2 PUFFS, EVERY MORNING
     Route: 055
     Dates: start: 2012, end: 20160116
  3. LAMICTAL [Concomitant]
     Active Substance: LAMOTRIGINE
     Route: 048
     Dates: start: 2008
  4. ALBUTEROL. [Concomitant]
     Active Substance: ALBUTEROL
     Indication: ASTHMA
     Dosage: AS REQUIRED
     Route: 055
  5. PULMICORT FLEXHALER [Suspect]
     Active Substance: BUDESONIDE
     Indication: ASTHMA
     Dosage: 180MCG, 2 PUFFS EVERY AFTERNOON
     Route: 055
     Dates: start: 20150905
  6. PULMICORT FLEXHALER [Suspect]
     Active Substance: BUDESONIDE
     Indication: PNEUMONIA ASPIRATION
     Dosage: 180MCG, 2 PUFFS EVERY AFTERNOON
     Route: 055
     Dates: start: 20150905
  7. TRAZODONE [Concomitant]
     Active Substance: TRAZODONE HYDROCHLORIDE
     Route: 048
     Dates: start: 2008
  8. FIORICET [Concomitant]
     Active Substance: ACETAMINOPHEN\BUTALBITAL\CAFFEINE
     Indication: HEADACHE
     Dosage: AS REQUIRED
     Route: 048
  9. PULMICORT FLEXHALER [Suspect]
     Active Substance: BUDESONIDE
     Indication: PNEUMONIA ASPIRATION
     Dosage: 180MCG, 2 PUFFS EVERY AFTERNOON
     Route: 055
     Dates: start: 2012
  10. SYMBICORT [Suspect]
     Active Substance: BUDESONIDE\FORMOTEROL FUMARATE DIHYDRATE
     Indication: ASTHMA
     Dosage: 160/4.5, 2 PUFFS, TWO TIMES A DAY
     Route: 055
  11. SEROQUEL [Suspect]
     Active Substance: QUETIAPINE FUMARATE
     Indication: INSOMNIA
     Route: 048
     Dates: start: 2008
  12. SEROQUEL [Suspect]
     Active Substance: QUETIAPINE FUMARATE
     Indication: SLEEP DISORDER
     Route: 048
     Dates: start: 2008
  13. PROLIA [Concomitant]
     Active Substance: DENOSUMAB
     Dosage: EVERY 6 MONTHS
     Route: 058
  14. OXYCODONE [Concomitant]
     Active Substance: OXYCODONE
     Route: 048
  15. PROVENTIL [Concomitant]
     Active Substance: ALBUTEROL
     Indication: ASTHMA
     Dosage: AS REQUIRED
     Route: 055
  16. CYMBALTA [Concomitant]
     Active Substance: DULOXETINE HYDROCHLORIDE
     Route: 048
     Dates: start: 2014
  17. PROBIOTIC [Concomitant]
     Active Substance: PROBIOTICS NOS
     Dosage: DAILY
     Route: 048
  18. PULMICORT FLEXHALER [Suspect]
     Active Substance: BUDESONIDE
     Indication: ASTHMA
     Dosage: 180MCG, 2 PUFFS EVERY AFTERNOON
     Route: 055
     Dates: start: 2012
  19. SYMBICORT [Suspect]
     Active Substance: BUDESONIDE\FORMOTEROL FUMARATE DIHYDRATE
     Indication: PNEUMONIA ASPIRATION
     Dosage: 160/4.5, 2 PUFFS, TWO TIMES A DAY
     Route: 055

REACTIONS (10)
  - Pneumonia aspiration [Unknown]
  - Product quality issue [Unknown]
  - Sleep disorder due to a general medical condition [Unknown]
  - Product use issue [Not Recovered/Not Resolved]
  - Off label use [Unknown]
  - Asthma [Unknown]
  - Hiatus hernia [Not Recovered/Not Resolved]
  - Drug dose omission [Unknown]
  - Squamous cell carcinoma [Unknown]
  - Device issue [Unknown]

NARRATIVE: CASE EVENT DATE: 2008
